FAERS Safety Report 12500873 (Version 1)
Quarter: 2016Q2

REPORT INFORMATION
  Report Type: Report from Study
  Country: US (occurrence: US)
  Receive Date: 20160627
  Receipt Date: 20160627
  Transmission Date: 20160815
  Serious: Yes (Hospitalization, Disabling, Other)
  Sender: FDA-Public Use
  Company Number: US-BAXALTA-2016BLT000803

PATIENT
  Age: 54 Year
  Sex: Male

DRUGS (2)
  1. GAMMAGARD LIQUID [Suspect]
     Active Substance: HUMAN IMMUNOGLOBULIN G
     Dosage: UNK, 2X A WEEK
     Route: 065
     Dates: start: 201511, end: 201512
  2. GAMMAGARD LIQUID [Suspect]
     Active Substance: HUMAN IMMUNOGLOBULIN G
     Indication: PRIMARY IMMUNODEFICIENCY SYNDROME
     Dosage: 10 G, 1X A WEEK
     Route: 058
     Dates: start: 201008, end: 201509

REACTIONS (6)
  - Aplastic anaemia [Recovering/Resolving]
  - Asthenia [Not Recovered/Not Resolved]
  - Tongue discolouration [Unknown]
  - Tongue disorder [Unknown]
  - Impaired work ability [Not Recovered/Not Resolved]
  - Malaise [Unknown]

NARRATIVE: CASE EVENT DATE: 201509
